FAERS Safety Report 6422559-5 (Version None)
Quarter: 2009Q4

REPORT INFORMATION
  Report Type: 
  Country: None (occurrence: None)
  Receive Date: 20091102
  Receipt Date: 20091022
  Transmission Date: 20100525
  Serious: Yes (Hospitalization)
  Sender: FDA-Public Use
  Company Number: US-BIOGENIDEC-2009BI028674

PATIENT
  Age: 25 Year
  Sex: Female
  Weight: 58 kg

DRUGS (1)
  1. AVONEX [Suspect]
     Indication: MULTIPLE SCLEROSIS
     Route: 030
     Dates: start: 20090101

REACTIONS (4)
  - GASTROENTERITIS VIRAL [None]
  - GASTROOESOPHAGEAL REFLUX DISEASE [None]
  - INFLUENZA [None]
  - ULCER [None]
